FAERS Safety Report 9780511 (Version 1)
Quarter: 2013Q4

REPORT INFORMATION
  Report Type: Report from Study
  Country: CA (occurrence: CA)
  Receive Date: 20131224
  Receipt Date: 20131224
  Transmission Date: 20140711
  Serious: Yes (Hospitalization, Other)
  Sender: FDA-Public Use
  Company Number: CA-ABBVIE-13P-028-1181426-00

PATIENT
  Age: 86 Year
  Sex: Male
  Weight: 77.18 kg

DRUGS (1)
  1. LUPRON DEPOT [Suspect]
     Indication: PROSTATE CANCER
     Route: 050
     Dates: start: 20080908

REACTIONS (4)
  - Malaise [Not Recovered/Not Resolved]
  - Anuria [Unknown]
  - Prostate cancer [Unknown]
  - Asthenia [Unknown]
